FAERS Safety Report 4698860-2 (Version None)
Quarter: 2005Q2

REPORT INFORMATION
  Report Type: 
  Country: None (occurrence: None)
  Receive Date: 20050623
  Receipt Date: 20050610
  Transmission Date: 20051028
  Serious: Yes (Other)
  Sender: FDA-Public Use
  Company Number: 215374

PATIENT
  Age: 63 Year
  Sex: Female

DRUGS (9)
  1. RITUXAN [Suspect]
     Indication: LYMPHOMA
     Dates: start: 20050307, end: 20050405
  2. FLUDARABINE PHOSPHATE [Suspect]
     Indication: LYMPHOMA
     Dates: start: 20050101
  3. PRAMIPEXOLE DIHYDROCHLORIDE (PRAMIPEXOLE DIHYDROCHLORIDE) [Concomitant]
  4. RABEPRAZOLE SODIUM [Concomitant]
  5. ATORVASTATIN (ATORVASTATIN CALCIUM) [Concomitant]
  6. METFORMIN HCL [Concomitant]
  7. GLICLAZIDE (GLICLAZIDE) [Concomitant]
  8. HYDROCHLOROTHIAZIDE [Concomitant]
  9. VALSARTAN [Concomitant]

REACTIONS (6)
  - ABASIA [None]
  - ANAPHYLACTIC REACTION [None]
  - ASTHENIA [None]
  - HYPERSENSITIVITY [None]
  - INFUSION RELATED REACTION [None]
  - MYELOPATHY [None]
